FAERS Safety Report 16664212 (Version 1)
Quarter: 2019Q3

REPORT INFORMATION
  Report Type: Spontaneous
  Country: JP (occurrence: JP)
  Receive Date: 20190802
  Receipt Date: 20190802
  Transmission Date: 20191004
  Serious: Yes (Life-Threatening, Hospitalization, Other)
  Sender: FDA-Public Use
  Company Number: JP-ELI_LILLY_AND_COMPANY-JP201811002247

PATIENT
  Age: 70 Year
  Sex: Male
  Weight: 69 kg

DRUGS (11)
  1. ERBITUX [Suspect]
     Active Substance: CETUXIMAB
     Dosage: 340 MG, WEEKLY (1/W)
     Route: 041
     Dates: start: 2018, end: 20181003
  2. 5 FU [Concomitant]
     Active Substance: FLUOROURACIL
     Dosage: 2000 MG/M2, WEEKLY (1/W) 3400 MG
     Route: 041
     Dates: start: 20180525, end: 20181003
  3. MINOCYCLINE HYDROCHLORIDE. [Concomitant]
     Active Substance: MINOCYCLINE HYDROCHLORIDE
     Indication: PRODUCT USED FOR UNKNOWN INDICATION
     Dosage: 50 MG
     Route: 048
     Dates: start: 20180525, end: 20181024
  4. ALLEGRA [Concomitant]
     Active Substance: FEXOFENADINE HYDROCHLORIDE
     Indication: ALLERGY PROPHYLAXIS
     Dosage: 60 MG, DAILY
     Route: 048
     Dates: start: 20180525, end: 20181024
  5. ERBITUX [Suspect]
     Active Substance: CETUXIMAB
     Indication: COLON CANCER METASTATIC
     Dosage: 440 MG, UNKNOWN
     Route: 041
     Dates: start: 20180525, end: 20181003
  6. HIRUDOID FORTE [Concomitant]
     Indication: PRODUCT USED FOR UNKNOWN INDICATION
  7. 5 FU [Concomitant]
     Active Substance: FLUOROURACIL
     Indication: COLON CANCER METASTATIC
     Dosage: 300 MG/M2, UNKNOWN
     Route: 041
     Dates: start: 20180525, end: 20181003
  8. LEVOFOLINATE CALCIUM [Concomitant]
     Active Substance: LEVOLEUCOVORIN CALCIUM
     Indication: COLON CANCER METASTATIC
     Dosage: 200 MG/M2, OTHER 340 MG
     Route: 041
     Dates: start: 20180525
  9. ELPLAT [Concomitant]
     Active Substance: OXALIPLATIN
     Indication: COLON CANCER METASTATIC
     Dosage: 65 MG/M2, WEEKLY (1/W) 100 MG
     Route: 041
     Dates: start: 20180525, end: 20181003
  10. ALMETA [Concomitant]
     Active Substance: ALCLOMETASONE DIPROPIONATE
     Indication: PRODUCT USED FOR UNKNOWN INDICATION
  11. DERMOVATE CAPILAR [Concomitant]
     Indication: PRODUCT USED FOR UNKNOWN INDICATION

REACTIONS (5)
  - Respiratory failure [Recovering/Resolving]
  - Pneumonia aspiration [Recovering/Resolving]
  - Pneumonia klebsiella [Recovering/Resolving]
  - Interstitial lung disease [Recovering/Resolving]
  - Catheter site infection [Recovering/Resolving]

NARRATIVE: CASE EVENT DATE: 201810
